FAERS Safety Report 4761269-7 (Version None)
Quarter: 2005Q3

REPORT INFORMATION
  Report Type: 
  Country: None (occurrence: None)
  Receive Date: 20050906
  Receipt Date: 20050824
  Transmission Date: 20060218
  Serious: Yes (Other)
  Sender: FDA-Public Use
  Company Number: US-JNJFOC-20050805744

PATIENT
  Age: 19 Year
  Sex: Female

DRUGS (1)
  1. REMICADE [Suspect]
     Indication: CROHN'S DISEASE
     Dosage: 6-12 MONTHS
     Route: 042

REACTIONS (4)
  - CROHN'S DISEASE [None]
  - FISTULA [None]
  - MENTAL IMPAIRMENT [None]
  - PELVIC ABSCESS [None]
